FAERS Safety Report 15093195 (Version 12)
Quarter: 2020Q1

REPORT INFORMATION
  Report Type: Report from Study
  Country: AU (occurrence: AU)
  Receive Date: 20180629
  Receipt Date: 20200302
  Transmission Date: 20200409
  Serious: Yes (Death, Life-Threatening, Hospitalization)
  Sender: FDA-Public Use
  Company Number: AU-EISAI MEDICAL RESEARCH-EC-2018-037421

PATIENT
  Age: 77 Year
  Sex: Female
  Weight: 63.7 kg

DRUGS (38)
  1. LENVATINIB [Suspect]
     Active Substance: LENVATINIB
     Indication: RENAL CELL CARCINOMA
     Route: 048
     Dates: start: 20180228, end: 20180321
  2. LENVATINIB [Suspect]
     Active Substance: LENVATINIB
     Route: 048
     Dates: start: 20180412, end: 20180424
  3. LENVATINIB [Suspect]
     Active Substance: LENVATINIB
     Route: 048
     Dates: start: 20180525, end: 20180620
  4. GASTROSTOP [Concomitant]
  5. AMLODIPINE [Concomitant]
     Active Substance: AMLODIPINE BESYLATE
  6. FENTANYL TRANSDERMAL SYSTEM [Concomitant]
     Active Substance: FENTANYL
  7. DEXAMETHASONE. [Concomitant]
     Active Substance: DEXAMETHASONE
  8. FRUSEMIDE [Concomitant]
     Active Substance: FUROSEMIDE
  9. NEBIVOLOL. [Concomitant]
     Active Substance: NEBIVOLOL
  10. PERINDORAL [Concomitant]
  11. CYCLIZINE [Concomitant]
     Active Substance: CYCLIZINE
  12. ENOXAPARIN [Concomitant]
     Active Substance: ENOXAPARIN
  13. MAGNESIUM [Concomitant]
     Active Substance: MAGNESIUM
  14. ONDASETRON [Concomitant]
     Active Substance: ONDANSETRON
  15. LENVATINIB [Suspect]
     Active Substance: LENVATINIB
     Route: 048
     Dates: start: 20180501, end: 20180517
  16. LENVATINIB [Suspect]
     Active Substance: LENVATINIB
     Route: 048
     Dates: start: 20180801, end: 20180815
  17. RANITIDINE. [Concomitant]
     Active Substance: RANITIDINE
  18. BIOTENE NOS [Concomitant]
     Active Substance: CETYLPYRIDINIUM CHLORIDE OR SODIUM FLUORIDE OR SODIUM MONOFLUOROPHOSPHATE OR GLUCOSE OXIDASE\LACTOFERRIN\LACTOPEROXIDASE BOVINE\LYSOZYME
  19. NORVASC [Concomitant]
     Active Substance: AMLODIPINE BESYLATE
  20. EVEROLIMUS. [Suspect]
     Active Substance: EVEROLIMUS
     Route: 048
     Dates: start: 2018, end: 20180620
  21. PANTOPRAZOLE [Concomitant]
     Active Substance: PANTOPRAZOLE
  22. COLECALCIFEROL [Concomitant]
     Active Substance: CHOLECALCIFEROL
  23. DOCUSATE-SENNA [Concomitant]
  24. MACROGOL [Concomitant]
     Active Substance: POLYETHYLENE GLYCOLS
  25. SODIUM BICARBONATE. [Concomitant]
     Active Substance: SODIUM BICARBONATE
  26. EVEROLIMUS. [Suspect]
     Active Substance: EVEROLIMUS
     Route: 048
     Dates: start: 2018, end: 20180727
  27. EVEROLIMUS. [Suspect]
     Active Substance: EVEROLIMUS
     Dosage: UNKNOWN
     Route: 048
     Dates: start: 20180802, end: 20180823
  28. TRAMADOL. [Concomitant]
     Active Substance: TRAMADOL
  29. PARACETAMOL [Concomitant]
     Active Substance: ACETAMINOPHEN
  30. SOMAC [Concomitant]
     Active Substance: PANTOPRAZOLE SODIUM
  31. EVEROLIMUS. [Suspect]
     Active Substance: EVEROLIMUS
     Indication: RENAL CELL CARCINOMA
     Route: 048
     Dates: start: 20180228, end: 20180321
  32. DILAUDID [Concomitant]
     Active Substance: HYDROMORPHONE HYDROCHLORIDE
  33. LENVATINIB [Suspect]
     Active Substance: LENVATINIB
     Route: 048
     Dates: start: 20180704, end: 20180726
  34. MS CONTIN [Concomitant]
     Active Substance: MORPHINE SULFATE
  35. BUSCOPAN FORTE [Concomitant]
  36. ATORVASTATIN [Concomitant]
     Active Substance: ATORVASTATIN
  37. METOCLOPRAMIDE. [Concomitant]
     Active Substance: METOCLOPRAMIDE
  38. PREDNISONE. [Concomitant]
     Active Substance: PREDNISONE

REACTIONS (4)
  - Malignant neoplasm progression [Fatal]
  - Acute kidney injury [Recovered/Resolved]
  - Pneumonia [Recovered/Resolved]
  - Pyelonephritis [Recovered/Resolved]

NARRATIVE: CASE EVENT DATE: 20180325
